FAERS Safety Report 15588003 (Version 5)
Quarter: 2019Q3

REPORT INFORMATION
  Report Type: Report from Study
  Country: ZA (occurrence: ZA)
  Receive Date: 20181105
  Receipt Date: 20190731
  Transmission Date: 20191004
  Serious: Yes (Hospitalization, Other)
  Sender: FDA-Public Use
  Company Number: PHHY2018ZA147348

PATIENT
  Age: 28 Year
  Sex: Female

DRUGS (5)
  1. TUVIGIN [Suspect]
     Active Substance: FINGOLIMOD HYDROCHLORIDE
     Indication: RELAPSING-REMITTING MULTIPLE SCLEROSIS
     Dosage: 0.5 MG, QD
     Route: 048
     Dates: start: 20181023, end: 20181109
  2. ECOTRIN [Concomitant]
     Active Substance: ASPIRIN
     Indication: PRODUCT USED FOR UNKNOWN INDICATION
     Dosage: UNK
     Route: 065
  3. VITAMIN D [Concomitant]
     Active Substance: VITAMIN D NOS
     Indication: PRODUCT USED FOR UNKNOWN INDICATION
     Dosage: UNK
     Route: 065
  4. TUVIGIN [Suspect]
     Active Substance: FINGOLIMOD HYDROCHLORIDE
     Dosage: 0.5 MG, QD
     Route: 048
     Dates: start: 20190115
  5. ESCITALOPRAM [Concomitant]
     Active Substance: ESCITALOPRAM OXALATE
     Indication: PRODUCT USED FOR UNKNOWN INDICATION
     Dosage: UNK
     Route: 065

REACTIONS (16)
  - Heart rate irregular [Unknown]
  - Chest pain [Recovering/Resolving]
  - Fatigue [Unknown]
  - Herpes zoster [Unknown]
  - Glaucoma [Unknown]
  - Sleep apnoea syndrome [Unknown]
  - Insomnia [Unknown]
  - Snoring [Unknown]
  - Disturbance in attention [Unknown]
  - Blood pressure fluctuation [Unknown]
  - Hepatic lesion [Unknown]
  - Vomiting [Unknown]
  - Memory impairment [Unknown]
  - Focal nodular hyperplasia [Unknown]
  - Biliary tract disorder [Unknown]
  - Central nervous system lesion [Unknown]

NARRATIVE: CASE EVENT DATE: 20181023
